FAERS Safety Report 4311948-0 (Version None)
Quarter: 2004Q1

REPORT INFORMATION
  Report Type: 
  Country: None (occurrence: None)
  Receive Date: 20040303
  Receipt Date: 20040220
  Transmission Date: 20041129
  Serious: Yes (Other)
  Sender: FDA-Public Use
  Company Number: JP-JNJFOC-20040204955

PATIENT
  Age: 13 Day
  Sex: 0

DRUGS (4)
  1. LEVOFLOXACIN [Suspect]
     Indication: INFECTION
     Dosage: 250 MG, TRANSMAMMARY
     Dates: start: 20040124, end: 20040124
  2. DICLOFENAC SODIUM [Suspect]
     Indication: PAIN
     Dosage: TRANSMAMMARY
     Route: 063
     Dates: start: 20040111, end: 20040124
  3. D-FLUORETTEN (D-FLUORETTEN) [Concomitant]
  4. SELENASE (SELENIDE SODIUM) [Suspect]
     Dosage: TRANSMAMMARY
     Route: 063
     Dates: start: 20040111, end: 20040124

REACTIONS (13)
  - AMMONIA DECREASED [None]
  - BLOOD CALCIUM INCREASED [None]
  - BLOOD CORTISOL DECREASED [None]
  - BLOOD PHOSPHORUS INCREASED [None]
  - BLOOD THYROID STIMULATING HORMONE INCREASED [None]
  - CONVULSION NEONATAL [None]
  - CYANOSIS NEONATAL [None]
  - DRUG EXPOSURE VIA BREAST MILK [None]
  - EOSINOPHIL PERCENTAGE INCREASED [None]
  - HAEMOGLOBIN INCREASED [None]
  - HYPERHIDROSIS [None]
  - NEONATAL DISORDER [None]
  - NEONATAL TACHYCARDIA [None]
